FAERS Safety Report 7430832-7 (Version None)
Quarter: 2011Q2

REPORT INFORMATION
  Report Type: 
  Country: None (occurrence: None)
  Receive Date: 20110419
  Receipt Date: 20110419
  Transmission Date: 20111010
  Serious: Yes (Other)
  Sender: FDA-Public Use
  Company Number: None

PATIENT
  Age: 68 Year
  Sex: Male

DRUGS (6)
  1. ISOSORBIDE DINITRATE [Concomitant]
  2. DIOVAN [Suspect]
     Indication: HYPERTENSION
     Dosage: TAKE 1 TABLET DAILY A COUPLE OF YEARS
  3. DEPAKOTE [Concomitant]
  4. SEROQUEL [Concomitant]
  5. GLIPIZIDE [Concomitant]
  6. FUROSEMIDE [Concomitant]

REACTIONS (1)
  - PRODUCT QUALITY ISSUE [None]
